FAERS Safety Report 14963239 (Version 2)
Quarter: 2018Q2

REPORT INFORMATION
  Report Type: Spontaneous
  Country: US (occurrence: US)
  Receive Date: 20180601
  Receipt Date: 20180628
  Transmission Date: 20180711
  Serious: Yes (Death)
  Sender: FDA-Public Use
  Company Number: US-HORIZON-RAV-0085-2018

PATIENT
  Age: 37 Year
  Sex: Female

DRUGS (4)
  1. RAVICTI [Suspect]
     Active Substance: GLYCEROL PHENYLBUTYRATE
     Indication: ORNITHINE TRANSCARBAMOYLASE DEFICIENCY
     Dates: start: 2017
  2. ESSENTIAL AMINO ACIDS [Concomitant]
  3. CARNITINE [Concomitant]
     Active Substance: CARNITINE
  4. DEPO-PROVERA [Concomitant]
     Active Substance: MEDROXYPROGESTERONE ACETATE

REACTIONS (12)
  - Hyperammonaemia [Not Recovered/Not Resolved]
  - Brain oedema [Not Recovered/Not Resolved]
  - Liver disorder [Fatal]
  - Amino acid level abnormal [Unknown]
  - Food refusal [Unknown]
  - Syncope [Unknown]
  - Dialysis [Unknown]
  - Slow response to stimuli [Unknown]
  - Death [Fatal]
  - Oedema [Not Recovered/Not Resolved]
  - General physical health deterioration [Not Recovered/Not Resolved]
  - Amino acid level increased [Unknown]
